FAERS Safety Report 14455009 (Version 1)
Quarter: 2018Q1

REPORT INFORMATION
  Report Type: Spontaneous
  Country: US (occurrence: US)
  Receive Date: 20180129
  Receipt Date: 20180129
  Transmission Date: 20180509
  Serious: Yes (Other)
  Sender: FDA-Public Use
  Company Number: US-DSJP-DSU-2017-143568

PATIENT

DRUGS (1)
  1. BENICAR [Suspect]
     Active Substance: OLMESARTAN MEDOXOMIL
     Indication: HYPERTENSION
     Dosage: 40 MG, QD
     Route: 048
     Dates: start: 20060726, end: 20120910

REACTIONS (7)
  - Diverticulum [Not Recovered/Not Resolved]
  - Constipation [Unknown]
  - Cholelithiasis [Recovered/Resolved]
  - Drug administration error [Unknown]
  - Large intestine polyp [None]
  - Haemorrhoids [Unknown]
  - Sprue-like enteropathy [Unknown]

NARRATIVE: CASE EVENT DATE: 20060726
